FAERS Safety Report 9265160 (Version 1)
Quarter: 2013Q2

REPORT INFORMATION
  Report Type: Spontaneous
  Country: US (occurrence: US)
  Receive Date: 20130501
  Receipt Date: 20130501
  Transmission Date: 20140414
  Serious: No
  Sender: FDA-Public Use
  Company Number: US-PFIZER INC-2013133724

PATIENT
  Age: 53 Year
  Sex: Female
  Weight: 71.8 kg

DRUGS (3)
  1. MORPHINE SULFATE [Suspect]
  2. ERYTHROMYCIN [Suspect]
  3. KEFLEX [Suspect]

REACTIONS (1)
  - Drug hypersensitivity [Unknown]
